FAERS Safety Report 6290582-X (Version None)
Quarter: 2009Q4

REPORT INFORMATION
  Report Type: 
  Country: None (occurrence: None)
  Receive Date: 20090728
  Receipt Date: 20090728
  Transmission Date: 20100525
  Serious: No
  Sender: FDA-Public Use
  Company Number: None

PATIENT
  Age: 82 Year
  Sex: Female

DRUGS (21)
  1. VORICONAZOLE [Suspect]
     Dosage: 2
     Dates: start: 20070720
  2. NEXIUM [Concomitant]
  3. SYNTHROID [Concomitant]
  4. ESTRAFON [Concomitant]
  5. CLONIDINE [Concomitant]
  6. METOPROLOL TARTRATE [Concomitant]
  7. MIACALCIN [Concomitant]
  8. ASPIRIN [Concomitant]
  9. DETROL [Concomitant]
  10. ALLEGRA [Concomitant]
  11. CILOSTAZOL [Concomitant]
  12. DIOVAN [Concomitant]
  13. VARIOUS EYE DROPS FOR GLAUCOMA [Concomitant]
  14. CENTRUM SILVER VITAMINS [Concomitant]
  15. ASCORBIC ACID [Concomitant]
  16. MAGNESIUM [Concomitant]
  17. MAALOX [Concomitant]
  18. METAMUCIL [Concomitant]
  19. GAX-EX [Concomitant]
  20. FIBERCON [Concomitant]
  21. CALCIUM +D [Concomitant]

REACTIONS (4)
  - CHOLESTATIC LIVER INJURY [None]
  - EYE IRRITATION [None]
  - KERATITIS [None]
  - UVEITIS [None]
